FAERS Safety Report 19310292 (Version 2)
Quarter: 2021Q3

REPORT INFORMATION
  Report Type: Spontaneous
  Country: US (occurrence: US)
  Receive Date: 20210526
  Receipt Date: 20210809
  Transmission Date: 20211014
  Serious: Yes (Hospitalization)
  Sender: FDA-Public Use
  Company Number: US-BAYER-2021-147456

PATIENT
  Age: 70 Year

DRUGS (1)
  1. MIRALAX [Suspect]
     Active Substance: POLYETHYLENE GLYCOL 3350
     Indication: CONSTIPATION
     Dosage: 1 DF
     Route: 048
     Dates: start: 202105

REACTIONS (7)
  - Illness [None]
  - Dyspepsia [Unknown]
  - Pain [None]
  - Asthenia [None]
  - Abdominal discomfort [Unknown]
  - Dry mouth [None]
  - Diarrhoea [None]

NARRATIVE: CASE EVENT DATE: 202105
